FAERS Safety Report 10026118 (Version 1)
Quarter: 2014Q1

REPORT INFORMATION
  Report Type: Spontaneous
  Country: AT (occurrence: AT)
  Receive Date: 20140320
  Receipt Date: 20140320
  Transmission Date: 20141002
  Serious: Yes (Other)
  Sender: FDA-Public Use
  Company Number: AT-TEVA-468026ISR

PATIENT
  Age: 48 Year
  Sex: Male
  Weight: 102.5 kg

DRUGS (31)
  1. MIRTABENE FILMTABLETTEN RATIOPHARM , 30 MG, 45 MG. [Suspect]
     Indication: PRODUCT USED FOR UNKNOWN INDICATION
     Dosage: DOSAGE FORM: UNSPECIFIED
     Route: 065
     Dates: start: 20130905, end: 20130924
  2. MIRTABENE FILMTABLETTEN RATIOPHARM , 30 MG, 45 MG. [Suspect]
     Dosage: DOSAGE FORM: UNSPECIFIED
     Dates: start: 20130925, end: 20131007
  3. MIRTABENE FILMTABLETTEN RATIOPHARM , 30 MG, 45 MG. [Suspect]
     Dosage: DOSAGE FORM: UNSPECIFIED
     Route: 065
     Dates: start: 20131008, end: 20131013
  4. MIRTABENE FILMTABLETTEN RATIOPHARM , 30 MG, 45 MG. [Suspect]
     Dosage: DOSAGE FORM: UNSPECIFIED, STARTED SINCE MONTHS
     Route: 065
     Dates: end: 20130904
  5. CIPRALEX [Suspect]
     Indication: PRODUCT USED FOR UNKNOWN INDICATION
     Dosage: DOSAGE FORM: UNSPECIFIED
     Route: 065
     Dates: start: 20130906, end: 20130909
  6. CIPRALEX [Suspect]
     Dosage: DOSAGE FORM: UNSPECIFIED
     Route: 065
     Dates: start: 20130910, end: 20130910
  7. CIPRALEX [Suspect]
     Dosage: DOSAGE FORM: UNSPECIFIED
     Route: 065
     Dates: start: 20130911, end: 20130925
  8. CIPRALEX [Suspect]
     Dosage: DOSAGE FORM: UNSPECIFIED
     Route: 065
     Dates: start: 20130926
  9. RISPERDAL [Suspect]
     Indication: PRODUCT USED FOR UNKNOWN INDICATION
     Dosage: DOSAGE FORM: UNSPECIFIED
     Route: 048
     Dates: start: 20130916, end: 20130924
  10. RISPERDAL [Suspect]
     Dosage: DOSAGE FORM: UNSPECIFIED
     Route: 048
     Dates: start: 20130925
  11. LYRICA [Concomitant]
     Indication: PRODUCT USED FOR UNKNOWN INDICATION
     Dosage: DOSAGE FORM: UNSPECIFIED
     Route: 065
     Dates: start: 201307, end: 20130904
  12. LYRICA [Concomitant]
     Dosage: DOSAGE FORM: UNSPECIFIED
     Route: 065
     Dates: start: 20130905, end: 20130908
  13. LYRICA [Concomitant]
     Dosage: DOSAGE FORM: UNSPECIFIED
     Route: 065
     Dates: start: 20130909, end: 20130909
  14. LYRICA [Concomitant]
     Dosage: DOSAGE FORM: UNSPECIFIED
     Route: 065
     Dates: start: 20130910
  15. SERTRALINE [Concomitant]
     Dosage: DOSAGE FORM: UNSPECIFIED
     Route: 065
     Dates: start: 201308, end: 20130908
  16. SERTRALINE [Concomitant]
     Dosage: DOSAEG FORM: UNSPECIFIED
     Route: 065
     Dates: start: 20130909, end: 20130910
  17. LAMICTAL [Concomitant]
     Dosage: DOSAGE FORM: UNSPECIFIED
     Route: 065
     Dates: start: 201308, end: 20130917
  18. LAMICTAL [Concomitant]
     Dosage: DOSAGE FORM: UNSPECIFIED
     Route: 065
     Dates: start: 20130918, end: 20130922
  19. LAMICTAL [Concomitant]
     Dosage: DOSAGE FORM: UNSPECIFIED
     Route: 065
     Dates: start: 20130923, end: 20131001
  20. LAMICTAL [Concomitant]
     Dosage: DOSAGE FORM: UNSPECIFIED
     Route: 065
     Dates: start: 20131002
  21. RIVOTRIL [Concomitant]
     Dates: start: 20130905
  22. DOXAZOSIN [Concomitant]
     Indication: PRODUCT USED FOR UNKNOWN INDICATION
     Dosage: DOSAGE FORM: UNSPECIFIED
     Route: 065
     Dates: start: 20130910, end: 20130929
  23. DOXAZOSIN [Concomitant]
     Dosage: DOSAGE FORM: UNSPECIFIED
     Route: 065
     Dates: start: 20130930
  24. FOLSAN [Concomitant]
     Dosage: DOSAGE FORM: UNSPECIFIED
     Route: 065
     Dates: start: 20130910
  25. FOLSAN [Concomitant]
     Dosage: DOSAGE FORM: UNSPECIFIED, STARTED SINCE MONTHS
     Route: 065
     Dates: end: 20130909
  26. EXFORGE [Concomitant]
     Dosage: DOSAGE FORM: UNSPECIFIED, 10/160MG
     Route: 065
     Dates: start: 20130910
  27. EXFORGE [Concomitant]
     Dosage: DOSAGE FORM: UNSPECIFIED, 5/160 MG SINCE MONTHS
     Route: 065
     Dates: end: 20130909
  28. FUNGORAL [Concomitant]
     Route: 065
     Dates: start: 20130918, end: 20131013
  29. FUNGORAL [Concomitant]
     Route: 065
     Dates: start: 20130918, end: 20131013
  30. EBRANTIL [Concomitant]
     Dosage: DOSAGE FORM: UNSPECIFIED, STARTED SINCE MONTHS
     Route: 065
     Dates: end: 20130910
  31. NOMEXOR [Concomitant]
     Dosage: DOSAGE FORM: UNSOECIFIED, STARTED SINCE MONTHS
     Route: 065

REACTIONS (1)
  - Thrombophlebitis [Recovering/Resolving]
